FAERS Safety Report 23561495 (Version 1)
Quarter: 2024Q1

REPORT INFORMATION
  Report Type: Spontaneous
  Country: JP (occurrence: JP)
  Receive Date: 20240225
  Receipt Date: 20240225
  Transmission Date: 20240410
  Serious: Yes (Hospitalization)
  Sender: FDA-Public Use
  Company Number: JP-JNJFOC-20240254055

PATIENT
  Age: 70 Year
  Sex: Male
  Weight: 78.4 kg

DRUGS (4)
  1. ERLEADA [Suspect]
     Active Substance: APALUTAMIDE
     Indication: Hormone-dependent prostate cancer
     Route: 048
  2. DEGARELIX ACETATE [Concomitant]
     Active Substance: DEGARELIX ACETATE
     Indication: Hormone-dependent prostate cancer
     Route: 058
  3. DEGARELIX ACETATE [Concomitant]
     Active Substance: DEGARELIX ACETATE
     Route: 058
  4. BICALUTAMIDE [Concomitant]
     Active Substance: BICALUTAMIDE
     Indication: Product used for unknown indication
     Route: 065

REACTIONS (1)
  - Dermatitis exfoliative generalised [Recovered/Resolved]
